APPROVED DRUG PRODUCT: POTASSIUM CHLORIDE
Active Ingredient: POTASSIUM CHLORIDE
Strength: 10MEQ
Dosage Form/Route: CAPSULE, EXTENDED RELEASE;ORAL
Application: A204210 | Product #002
Applicant: CHARTWELL MOLECULAR HOLDINGS LLC
Approved: Mar 28, 2016 | RLD: No | RS: No | Type: DISCN